FAERS Safety Report 18463843 (Version 2)
Quarter: 2020Q4

REPORT INFORMATION
  Report Type: Spontaneous
  Country: US (occurrence: US)
  Receive Date: 20201104
  Receipt Date: 20201123
  Transmission Date: 20210114
  Serious: Yes (Hospitalization)
  Sender: FDA-Public Use
  Company Number: US-PARI RESPIRATORY EQUIPMENT, INC.-2020PAR00052

PATIENT
  Age: 19 Year
  Sex: Female

DRUGS (10)
  1. OMEPRAZOLE. [Concomitant]
     Active Substance: OMEPRAZOLE
  2. MIRTAZAPINE. [Concomitant]
     Active Substance: MIRTAZAPINE
  3. FAMOTIDINE. [Concomitant]
     Active Substance: FAMOTIDINE
  4. FLORAJEN [Concomitant]
     Active Substance: PROBIOTICS NOS
  5. PULMOZYME [Concomitant]
     Active Substance: DORNASE ALFA
     Dosage: UNK
  6. COMPLETE FORMULATION D5000 [Concomitant]
  7. KITABIS PAK [Suspect]
     Active Substance: TOBRAMYCIN
     Indication: CYSTIC FIBROSIS
     Dosage: 300 MG/5ML VIA NEBULIZER, 2X/DAY
     Dates: start: 20200416
  8. DOCUSATE [Concomitant]
     Active Substance: DOCUSATE
  9. CREON 24000 [Concomitant]
  10. UNSPECIFIED INSULIN SYRINGE [Concomitant]

REACTIONS (2)
  - Off label use [Not Recovered/Not Resolved]
  - Pneumonia [Unknown]

NARRATIVE: CASE EVENT DATE: 20200416
